FAERS Safety Report 16775117 (Version 1)
Quarter: 2019Q3

REPORT INFORMATION
  Report Type: Spontaneous
  Country: MY (occurrence: MY)
  Receive Date: 20190905
  Receipt Date: 20190905
  Transmission Date: 20191005
  Serious: Yes (Other)
  Sender: FDA-Public Use
  Company Number: MY-LUPIN PHARMACEUTICALS INC.-2019-05679

PATIENT
  Age: 32 Year
  Sex: Female

DRUGS (2)
  1. VITAMINS NOS [Concomitant]
     Active Substance: VITAMINS
     Indication: PRODUCT USED FOR UNKNOWN INDICATION
     Dosage: UNK
     Route: 065
  2. METOCLOPRAMIDE. [Suspect]
     Active Substance: METOCLOPRAMIDE
     Indication: MORNING SICKNESS
     Dosage: UNK UNK, TID
     Route: 048

REACTIONS (7)
  - Opisthotonus [Recovered/Resolved]
  - Exposure during pregnancy [Unknown]
  - Anxiety [Recovered/Resolved]
  - Eye movement disorder [Recovered/Resolved]
  - Muscle spasms [Recovered/Resolved]
  - Feeling jittery [Recovered/Resolved]
  - Dystonia [None]
